FAERS Safety Report 9700538 (Version 1)
Quarter: 2013Q4

REPORT INFORMATION
  Report Type: Spontaneous
  Country: US (occurrence: US)
  Receive Date: 20131121
  Receipt Date: 20131121
  Transmission Date: 20140711
  Serious: No
  Sender: FDA-Public Use
  Company Number: US-PFIZER INC-2013327078

PATIENT
  Age: 70 Year
  Sex: Female

DRUGS (1)
  1. BOSULIF [Suspect]
     Dosage: 500 MG, 1X/DAY
     Dates: start: 201311

REACTIONS (1)
  - Diarrhoea [Recovering/Resolving]
